FAERS Safety Report 8000420-2 (Version None)
Quarter: 2011Q4

REPORT INFORMATION
  Report Type: 
  Country: None (occurrence: None)
  Receive Date: 20111222
  Receipt Date: 20110217
  Transmission Date: 20120403
  Serious: No
  Sender: FDA-Public Use
  Company Number: US-BRISTOL-MYERS SQUIBB COMPANY-15557473

PATIENT
  Sex: Female

DRUGS (1)
  1. PRAVACHOL [Suspect]
     Dates: start: 20080101

REACTIONS (6)
  - ASTHENIA [None]
  - OROPHARYNGEAL PAIN [None]
  - PYREXIA [None]
  - DYSPHONIA [None]
  - INFLUENZA LIKE ILLNESS [None]
  - MYALGIA [None]
